FAERS Safety Report 12078338 (Version 1)
Quarter: 2016Q1

REPORT INFORMATION
  Report Type: Spontaneous
  Country: GB (occurrence: GB)
  Receive Date: 20160216
  Receipt Date: 20160216
  Transmission Date: 20160526
  Serious: Yes (Other)
  Sender: FDA-Public Use
  Company Number: GB-AMGEN-GBRSP2016018156

PATIENT
  Age: 73 Year
  Sex: Male

DRUGS (2)
  1. ENBREL [Suspect]
     Active Substance: ETANERCEPT
     Indication: PSORIATIC ARTHROPATHY
     Dosage: 50 MG, WEEKLY
     Route: 058
     Dates: start: 20151120, end: 20160108
  2. SULPHASALAZINE [Concomitant]
     Active Substance: SULFASALAZINE
     Dosage: 1000 MG (500MG X 2), 3X/DAY

REACTIONS (2)
  - Peripheral swelling [Unknown]
  - Cellulitis [Unknown]
